FAERS Safety Report 11702696 (Version 2)
Quarter: 2018Q1

REPORT INFORMATION
  Report Type: Spontaneous
  Country: US (occurrence: US)
  Receive Date: 20151105
  Receipt Date: 20180205
  Transmission Date: 20180508
  Serious: Yes (Hospitalization, Other)
  Sender: FDA-Public Use
  Company Number: US-PFIZER INC-2015372756

PATIENT
  Age: 71 Year
  Sex: Male
  Weight: 88.5 kg

DRUGS (4)
  1. INCB024360 [Suspect]
     Active Substance: EPACADOSTAT
     Indication: COLON CANCER
     Dosage: 50 MG, 2X/DAY
     Route: 048
     Dates: start: 20150312
  2. NIVOLUMAB [Suspect]
     Active Substance: NIVOLUMAB
     Indication: COLON CANCER
     Dosage: 3 MG/KG, EVERY SECOND WEEK
     Route: 042
     Dates: start: 20150312
  3. ATENOLOL. [Suspect]
     Active Substance: ATENOLOL
     Indication: HYPERTENSION
     Dosage: 50 MG, 1X/DAY
     Route: 048
     Dates: start: 201001, end: 20150914
  4. ATENOLOL. [Suspect]
     Active Substance: ATENOLOL
     Dosage: UNK
     Route: 048
     Dates: start: 20150914

REACTIONS (3)
  - Fatigue [Recovered/Resolved]
  - Syncope [Recovered/Resolved]
  - Bradycardia [Recovered/Resolved]

NARRATIVE: CASE EVENT DATE: 20150914
